FAERS Safety Report 9255945 (Version 1)
Quarter: 2013Q2

REPORT INFORMATION
  Report Type: Spontaneous
  Country: US (occurrence: US)
  Receive Date: 20130425
  Receipt Date: 20130425
  Transmission Date: 20140414
  Serious: Yes (Other)
  Sender: FDA-Public Use
  Company Number: CHPA2013US006655

PATIENT
  Age: 78 Year
  Sex: Female

DRUGS (11)
  1. BENEFIBER W/ WHEAT DEXTRIN [Suspect]
     Indication: CONSTIPATION
     Dosage: 3 HEAPING TSP, ONCE OR TWICE A DAY
     Route: 048
  2. BENEFIBER W/ WHEAT DEXTRIN [Suspect]
     Indication: DIARRHOEA
  3. BENEFIBER W/ WHEAT DEXTRIN [Suspect]
     Indication: FLATULENCE
  4. BENEFIBER ORANGE POWDER [Suspect]
     Indication: CONSTIPATION
     Dosage: 3 HEAPING TSP, ONCE OR TWICE A DAY
     Route: 048
  5. BENEFIBER ORANGE POWDER [Suspect]
     Indication: DIARRHOEA
  6. BENEFIBER ORANGE POWDER [Suspect]
     Indication: FLATULENCE
  7. BENEFIBER STICK PACKS [Suspect]
     Indication: CONSTIPATION
     Dosage: 1-2 DF, QD WHILE TRAVELLING
     Route: 048
  8. BENEFIBER STICK PACKS [Suspect]
     Indication: DIARRHOEA
  9. BENEFIBER STICK PACKS [Suspect]
     Indication: FLATULENCE
  10. IBUPROFEN [Concomitant]
     Indication: JOINT SWELLING
     Dosage: UNK, UNK
     Route: 048
  11. NITROGLYCERIN [Concomitant]
     Indication: CARDIAC DISORDER
     Dosage: 120 MG, QHS
     Route: 048

REACTIONS (4)
  - Arthropathy [Recovered/Resolved]
  - Anorectal disorder [Recovered/Resolved]
  - Therapeutic response unexpected [Unknown]
  - Off label use [Unknown]
